FAERS Safety Report 5491170-5 (Version None)
Quarter: 2007Q4

REPORT INFORMATION
  Report Type: 
  Country: None (occurrence: None)
  Receive Date: 20071019
  Receipt Date: 20071008
  Transmission Date: 20080405
  Serious: Yes (Other)
  Sender: FDA-Public Use
  Company Number: US-PFIZER INC-2007084667

PATIENT
  Age: 60 Year
  Sex: Female

DRUGS (11)
  1. SINEQUAN [Suspect]
     Dosage: DAILY DOSE:10MG
     Route: 048
  2. HALCION [Suspect]
     Dosage: DAILY DOSE:.5MG
     Route: 048
  3. MOS [Suspect]
     Dosage: DAILY DOSE:10MG-FREQ:FREQUENCY: 12XD
     Route: 048
  4. FUROSEMIDE [Suspect]
     Dosage: DAILY DOSE:40MG
  5. ATIVAN [Suspect]
     Dosage: DAILY DOSE:1MG
     Route: 048
  6. DIMENHYDRINATE [Concomitant]
  7. CHLORAL HYDRATE [Concomitant]
  8. SPIRONOLACTONE [Concomitant]
  9. CHLORPHENIRAMINE MALEATE [Concomitant]
  10. SURFAK [Concomitant]
  11. DEXAMETHASONE 0.5MG TAB [Concomitant]

REACTIONS (3)
  - PRURITUS [None]
  - RASH MACULO-PAPULAR [None]
  - TOXIC EPIDERMAL NECROLYSIS [None]
